FAERS Safety Report 5738001-3 (Version None)
Quarter: 2008Q2

REPORT INFORMATION
  Report Type: 
  Country: None (occurrence: None)
  Receive Date: 20080514
  Receipt Date: 20080507
  Transmission Date: 20081010
  Serious: Yes (Other)
  Sender: FDA-Public Use
  Company Number: CA-ASTRAZENECA-2008UW09096

PATIENT
  Age: 71 Year
  Sex: Female

DRUGS (3)
  1. ATACAND [Suspect]
     Route: 048
     Dates: start: 20050101
  2. FUROSEMIDE [Concomitant]
     Route: 048
     Dates: start: 20060322
  3. METOPROLOL TARTRATE [Concomitant]
     Route: 048
     Dates: start: 20070313

REACTIONS (2)
  - URINE COLOUR ABNORMAL [None]
  - URINE ODOUR ABNORMAL [None]
